FAERS Safety Report 12423623 (Version 1)
Quarter: 2016Q2

REPORT INFORMATION
  Report Type: Spontaneous
  Country: US (occurrence: US)
  Receive Date: 20160601
  Receipt Date: 20160601
  Transmission Date: 20160815
  Serious: No
  Sender: FDA-Public Use
  Company Number: US-NOVEN PHARMACEUTICALS, INC.-US2015000668

PATIENT
  Age: 84 Year
  Sex: Male

DRUGS (3)
  1. RITALIN [Concomitant]
     Active Substance: METHYLPHENIDATE HYDROCHLORIDE
  2. DAYTRANA [Suspect]
     Active Substance: METHYLPHENIDATE
     Dosage: UNK, QD, USING TWO 10 MG PATCHES EVERYDAY
     Route: 062
     Dates: start: 20150806
  3. DAYTRANA [Suspect]
     Active Substance: METHYLPHENIDATE
     Indication: DEMENTIA ALZHEIMER^S TYPE
     Dosage: UNK, QD, USING TWO 10 MG PATCHES EVERYDAY
     Route: 062
     Dates: start: 20150723, end: 2015

REACTIONS (3)
  - No adverse event [Unknown]
  - Off label use [Unknown]
  - Wrong technique in product usage process [Unknown]

NARRATIVE: CASE EVENT DATE: 20150723
